FAERS Safety Report 12835413 (Version 2)
Quarter: 2017Q1

REPORT INFORMATION
  Report Type: Spontaneous
  Country: US (occurrence: US)
  Receive Date: 20161011
  Receipt Date: 20170109
  Transmission Date: 20170428
  Serious: Yes (Other)
  Sender: FDA-Public Use
  Company Number: US-SHIRE-US201613365

PATIENT
  Age: 55 Year
  Sex: Female

DRUGS (1)
  1. XIIDRA [Suspect]
     Active Substance: LIFITEGRAST
     Indication: DRY EYE
     Dosage: 1 GTT (EACH EYE), 2X/DAY:BID
     Route: 047
     Dates: start: 20160915, end: 20160920

REACTIONS (2)
  - Lacrimation increased [Recovered/Resolved]
  - Corneal exfoliation [Recovered/Resolved]

NARRATIVE: CASE EVENT DATE: 201609
